FAERS Safety Report 19056694 (Version 1)
Quarter: 2021Q1

REPORT INFORMATION
  Report Type: Spontaneous
  Country: US (occurrence: US)
  Receive Date: 20210325
  Receipt Date: 20210325
  Transmission Date: 20210420
  Serious: Yes (Hospitalization)
  Sender: FDA-Public Use
  Company Number: None

PATIENT
  Age: 71 Year
  Sex: Female
  Weight: 58.42 kg

DRUGS (3)
  1. PERTUZUMAB. [Suspect]
     Active Substance: PERTUZUMAB
     Dates: end: 20210310
  2. TAXOL [Suspect]
     Active Substance: PACLITAXEL
     Dates: end: 20210310
  3. HERCEPTIN [Suspect]
     Active Substance: TRASTUZUMAB
     Dates: end: 20210310

REACTIONS (3)
  - Hypotension [None]
  - Spinal cord abscess [None]
  - Blood culture positive [None]

NARRATIVE: CASE EVENT DATE: 20210311
